FAERS Safety Report 16933470 (Version 1)
Quarter: 2019Q4

REPORT INFORMATION
  Report Type: Spontaneous
  Country: US (occurrence: US)
  Receive Date: 20191018
  Receipt Date: 20191018
  Transmission Date: 20200122
  Serious: No
  Sender: FDA-Public Use
  Company Number: US-KYOWAKIRIN-2019BKK004937

PATIENT

DRUGS (1)
  1. CRYSVITA [Suspect]
     Active Substance: BUROSUMAB-TWZA
     Indication: HYPOPHOSPHATAEMIA
     Dosage: 40 MG (0.8 MG/KG), EVERY TWO WEEKS
     Route: 058
     Dates: start: 20190225

REACTIONS (5)
  - Pain in extremity [Recovering/Resolving]
  - Photosensitivity reaction [Unknown]
  - Condition aggravated [Recovering/Resolving]
  - Sunburn [Unknown]
  - Skin exfoliation [Unknown]

NARRATIVE: CASE EVENT DATE: 20190311
